FAERS Safety Report 13391562 (Version 3)
Quarter: 2017Q2

REPORT INFORMATION
  Report Type: Spontaneous
  Country: AU (occurrence: AU)
  Receive Date: 20170331
  Receipt Date: 20170616
  Transmission Date: 20170830
  Serious: Yes (Other)
  Sender: FDA-Public Use
  Company Number: AU-SA-2017SA050687

PATIENT
  Age: 67 Year

DRUGS (2)
  1. LANTUS [Suspect]
     Active Substance: INSULIN GLARGINE
     Indication: BLOOD GLUCOSE INCREASED
     Dosage: 5 UNITS IN MORNING DOSE:5 UNIT(S)
     Route: 058
     Dates: start: 20161215, end: 20170215
  2. LANTUS [Suspect]
     Active Substance: INSULIN GLARGINE
     Indication: DIABETES MELLITUS
     Dosage: 5 UNITS IN MORNING DOSE:5 UNIT(S)
     Route: 058
     Dates: start: 20161215, end: 20170215

REACTIONS (8)
  - Weight increased [Unknown]
  - Pain in extremity [Recovered/Resolved]
  - Blood glucose decreased [Recovered/Resolved]
  - Haemorrhage [Recovered/Resolved]
  - Skin lesion [Recovered/Resolved]
  - Musculoskeletal pain [Recovered/Resolved]
  - Pruritus [Recovered/Resolved]
  - Blood glucose increased [Recovered/Resolved]

NARRATIVE: CASE EVENT DATE: 201701
